FAERS Safety Report 11115331 (Version 5)
Quarter: 2015Q3

REPORT INFORMATION
  Report Type: Report from Study
  Country: CH (occurrence: CH)
  Receive Date: 20150515
  Receipt Date: 20150706
  Transmission Date: 20151125
  Serious: Yes (Other)
  Sender: FDA-Public Use
  Company Number: CH-ABBVIE-15P-151-1388509-00

PATIENT
  Age: 71 Year
  Sex: Male

DRUGS (2)
  1. DUODOPA [Suspect]
     Active Substance: CARBIDOPA\LEVODOPA
     Indication: PRODUCT USED FOR UNKNOWN INDICATION
     Dosage: MD: 7ML CD DAY: 4.2ML/H CD NIGHT: 2.2ML/H ED: 1.5ML
     Route: 050
     Dates: start: 20150505
  2. MADOPAR LIQ 62.5 [Concomitant]
     Active Substance: BENSERAZIDE HYDROCHLORIDE\LEVODOPA
     Indication: PRODUCT USED FOR UNKNOWN INDICATION

REACTIONS (6)
  - Peritonitis [Recovered/Resolved]
  - Device dislocation [Unknown]
  - Secretion discharge [Unknown]
  - Pyrexia [Unknown]
  - Device occlusion [Unknown]
  - Device dislocation [Unknown]

NARRATIVE: CASE EVENT DATE: 201505
